FAERS Safety Report 7972908-1 (Version None)
Quarter: 2011Q4

REPORT INFORMATION
  Report Type: 
  Country: None (occurrence: None)
  Receive Date: 20111213
  Receipt Date: 20111129
  Transmission Date: 20120403
  Serious: Yes (Death, Hospitalization)
  Sender: FDA-Public Use
  Company Number: IL-ROCHE-1013639

PATIENT
  Sex: Female
  Weight: 67 kg

DRUGS (6)
  1. DIMITONE [Concomitant]
  2. ESCITALOPRAM [Concomitant]
     Indication: DEPRESSION
  3. SIMVASTATIN [Concomitant]
     Indication: HYPERLIPIDAEMIA
  4. MIRCERA [Suspect]
     Indication: NEPHROGENIC ANAEMIA
     Route: 065
     Dates: end: 20090101
  5. VASCACE [Concomitant]
     Indication: HYPERTENSION
  6. DIOVAN [Concomitant]
     Indication: HYPERTENSION

REACTIONS (2)
  - PYREXIA [None]
  - PNEUMONIA [None]
